FAERS Safety Report 5548928-3 (Version None)
Quarter: 2007Q4

REPORT INFORMATION
  Report Type: 
  Country: None (occurrence: None)
  Receive Date: 20071211
  Receipt Date: 20070321
  Transmission Date: 20080405
  Serious: No
  Sender: FDA-Public Use
  Company Number: US-AMGEN-KDL210065

PATIENT
  Sex: Female
  Weight: 63.6 kg

DRUGS (6)
  1. ENBREL [Suspect]
     Indication: RHEUMATOID ARTHRITIS
     Route: 058
     Dates: start: 20060927
  2. GLUCOSAMINE [Concomitant]
  3. MSM [Concomitant]
  4. VITAMIN E [Concomitant]
  5. PLAQUENIL [Concomitant]
  6. UNSPECIFIED NUTRITIONAL SUPPLEMENT [Concomitant]

REACTIONS (6)
  - ALANINE AMINOTRANSFERASE INCREASED [None]
  - ASPARTATE AMINOTRANSFERASE INCREASED [None]
  - BLOOD ALKALINE PHOSPHATASE INCREASED [None]
  - FATIGUE [None]
  - LIVER FUNCTION TEST ABNORMAL [None]
  - PRURITUS [None]
